FAERS Safety Report 25048472 (Version 1)
Quarter: 2025Q1

REPORT INFORMATION
  Report Type: Spontaneous
  Country: US (occurrence: US)
  Receive Date: 20250307
  Receipt Date: 20250307
  Transmission Date: 20250409
  Serious: No
  Sender: GLENMARK
  Company Number: US-GLENMARK PHARMACEUTICALS-2024GMK093416

PATIENT

DRUGS (1)
  1. ETHINYL ESTRADIOL\NORETHINDRONE ACETATE [Suspect]
     Active Substance: ETHINYL ESTRADIOL\NORETHINDRONE ACETATE
     Indication: Oral contraception
     Route: 048

REACTIONS (3)
  - Treatment delayed [Unknown]
  - Product regimen confusion [Unknown]
  - Product distribution issue [Unknown]
